FAERS Safety Report 9813540 (Version 1)
Quarter: 2014Q1

REPORT INFORMATION
  Report Type: Spontaneous
  Country: US (occurrence: US)
  Receive Date: 20140113
  Receipt Date: 20140113
  Transmission Date: 20141002
  Serious: No
  Sender: FDA-Public Use
  Company Number: US-PFIZER INC-2014005864

PATIENT
  Age: 78 Year
  Sex: Female
  Weight: 63.04 kg

DRUGS (10)
  1. ADVIL [Suspect]
     Indication: SPINAL COLUMN STENOSIS
     Dosage: 400 MG, (TAKING 2TABLETS OF 200MG AT ONE TIME) ONCE DAILY
     Dates: start: 201312, end: 201312
  2. ADVIL [Interacting]
     Indication: PAIN
     Dosage: 1200 MG, DAILY(TAKING 3TABLETS OF 200MG IN MORNING AND THREE AT NIGHT)
     Dates: start: 201312, end: 201312
  3. ADVIL [Interacting]
     Dosage: 600 MG, DAILY (THREE TABLETS OF 200MG)
     Dates: start: 201312, end: 201312
  4. ADVIL [Interacting]
     Dosage: UNK
     Dates: start: 201312
  5. COQ 10 [Interacting]
     Dosage: UNK
  6. ASPIRIN [Concomitant]
     Dosage: 81 MG, DAILY
  7. HYDROCHLOROTHIAZIDE WITH TRIAMTERENE [Concomitant]
     Dosage: 37.5MG/ 25 MG DAILY
  8. VITAMIN B3 [Concomitant]
     Dosage: 1000 IU, THREE TIMES A DAY
  9. MILK THISTLE [Concomitant]
     Dosage: UNK
  10. ATORVASTATIN [Concomitant]
     Dosage: UNK

REACTIONS (3)
  - Drug interaction [Unknown]
  - Diarrhoea [Unknown]
  - Drug ineffective [Unknown]
